FAERS Safety Report 7279647-3 (Version None)
Quarter: 2011Q1

REPORT INFORMATION
  Report Type: 
  Country: None (occurrence: None)
  Receive Date: 20110208
  Receipt Date: 20110131
  Transmission Date: 20110831
  Serious: Yes (Other)
  Sender: FDA-Public Use
  Company Number: US-US-EMD SERONO, INC.-230515J10USA

PATIENT
  Sex: Female
  Weight: 50 kg

DRUGS (3)
  1. REBIF [Suspect]
     Indication: MULTIPLE SCLEROSIS
     Route: 058
     Dates: start: 20090313, end: 20090101
  2. FLOMAX [Concomitant]
  3. ASPIRIN [Concomitant]
     Indication: BLOOD DISORDER

REACTIONS (5)
  - PANCREATIC DUCT STENOSIS [None]
  - WEIGHT DECREASED [None]
  - BILE DUCT STENOSIS [None]
  - LIPASE INCREASED [None]
  - BILE DUCT OBSTRUCTION [None]
